APPROVED DRUG PRODUCT: CARVEDILOL
Active Ingredient: CARVEDILOL
Strength: 3.125MG
Dosage Form/Route: TABLET;ORAL
Application: A077887 | Product #001
Applicant: HIKMA PHARMACEUTICALS
Approved: Sep 7, 2007 | RLD: No | RS: No | Type: DISCN